FAERS Safety Report 21436838 (Version 3)
Quarter: 2022Q4

REPORT INFORMATION
  Report Type: Spontaneous
  Country: US (occurrence: US)
  Receive Date: 20221010
  Receipt Date: 20221214
  Transmission Date: 20230113
  Serious: Yes (Hospitalization, Other)
  Sender: FDA-Public Use
  Company Number: US-BAYER-2022A139767

PATIENT
  Age: 43 Year
  Sex: Male
  Weight: 95.238 kg

DRUGS (2)
  1. KOVALTRY [Suspect]
     Active Substance: ANTIHEMOPHILIC FACTOR, HUMAN RECOMBINANT
     Indication: Factor VIII deficiency
     Dosage: 4500 IU, PRN
     Route: 042
     Dates: start: 202209
  2. KOVALTRY [Suspect]
     Active Substance: ANTIHEMOPHILIC FACTOR, HUMAN RECOMBINANT
     Indication: Factor VIII deficiency
     Dosage: 3 DF, FOR THE ACTIVE LEFT ANKLE BLEED TREATMENT
     Route: 042
     Dates: start: 20221002, end: 20221002

REACTIONS (2)
  - Haemarthrosis [Not Recovered/Not Resolved]
  - Weight decreased [None]
